FAERS Safety Report 25984728 (Version 2)
Quarter: 2025Q4

REPORT INFORMATION
  Report Type: Spontaneous
  Country: JP (occurrence: JP)
  Receive Date: 20251031
  Receipt Date: 20251208
  Transmission Date: 20260118
  Serious: Yes (Other)
  Sender: PFIZER
  Company Number: JP-PFIZER INC-PV202500128149

PATIENT
  Age: 76 Year
  Sex: Male
  Weight: 76.7 kg

DRUGS (5)
  1. PAXLOVID [Suspect]
     Active Substance: NIRMATRELVIR\RITONAVIR
     Indication: COVID-19 treatment
     Dosage: 2 DF, 2X/DAY (NIRMATRELVIR 150 MG]/RITONAVIR 100 MG)
     Route: 048
     Dates: start: 20250821, end: 20250825
  2. URSODIOL [Concomitant]
     Active Substance: URSODIOL
     Indication: Liver disorder
     Dosage: UNK
     Route: 048
     Dates: start: 20250821, end: 20250827
  3. CALONAL [Concomitant]
     Active Substance: ACETAMINOPHEN
     Indication: Symptomatic treatment
     Dosage: UNK
     Route: 048
     Dates: start: 20250821, end: 20250825
  4. DEQUALINIUM CHLORIDE [Concomitant]
     Active Substance: DEQUALINIUM CHLORIDE
     Indication: Symptomatic treatment
     Dosage: UNK
     Route: 048
     Dates: start: 20250821, end: 20250825
  5. DEXTROSE\SODIUM CHLORIDE\SODIUM LACTATE [Concomitant]
     Active Substance: DEXTROSE\SODIUM CHLORIDE\SODIUM LACTATE
     Dosage: 500 ML, DAILY
     Route: 042
     Dates: start: 20250821, end: 20250825

REACTIONS (6)
  - Blood creatine phosphokinase increased [Recovered/Resolved]
  - Liver disorder [Recovered/Resolved]
  - Condition aggravated [Recovered/Resolved]
  - Aspartate aminotransferase increased [Recovered/Resolved]
  - Alanine aminotransferase increased [Recovered/Resolved]
  - Off label use [Unknown]

NARRATIVE: CASE EVENT DATE: 20250801
